FAERS Safety Report 9343626 (Version 2)
Quarter: 2013Q3

REPORT INFORMATION
  Report Type: Spontaneous
  Country: BE (occurrence: BE)
  Receive Date: 20130612
  Receipt Date: 20130704
  Transmission Date: 20140515
  Serious: Yes (Other)
  Sender: FDA-Public Use
  Company Number: BE-AMGEN-BELSP2013040525

PATIENT
  Age: 63 Year
  Sex: Female

DRUGS (5)
  1. PROLIA [Suspect]
     Indication: PRODUCT USED FOR UNKNOWN INDICATION
  2. OLMEC [Concomitant]
     Indication: HYPERTENSION
  3. ALLOPURINOL [Concomitant]
     Dosage: UNK
  4. OMEPRAZOLE [Concomitant]
     Indication: OESOPHAGITIS
  5. LEVOTHYROXINE [Concomitant]
     Indication: HYPOTHYROIDISM

REACTIONS (1)
  - Renal failure acute [Recovered/Resolved]
